FAERS Safety Report 4390284-0 (Version None)
Quarter: 2004Q3

REPORT INFORMATION
  Report Type: 
  Country: None (occurrence: None)
  Receive Date: 20040706
  Receipt Date: 20040622
  Transmission Date: 20050211
  Serious: Yes (Hospitalization)
  Sender: FDA-Public Use
  Company Number: PL-ROCHE-372833

PATIENT
  Age: 43 Year
  Sex: Female
  Weight: 63 kg

DRUGS (7)
  1. CELLCEPT [Suspect]
     Route: 048
     Dates: start: 20020615, end: 20030415
  2. CELLCEPT [Suspect]
     Route: 048
     Dates: start: 20030415, end: 20040415
  3. CELLCEPT [Suspect]
     Route: 048
     Dates: start: 20040415
  4. NEORAL [Concomitant]
     Route: 048
  5. METOCARD [Concomitant]
     Route: 048
  6. ISOPTIN TAB [Concomitant]
     Route: 042
  7. ENCORTON [Concomitant]
     Indication: IMMUNOSUPPRESSION
     Route: 048
     Dates: start: 19950615

REACTIONS (3)
  - DIARRHOEA [None]
  - GASTROINTESTINAL MUCOSAL DISORDER [None]
  - WEIGHT DECREASED [None]
